FAERS Safety Report 23354398 (Version 1)
Quarter: 2024Q1

REPORT INFORMATION
  Report Type: Other
  Country: GB (occurrence: GB)
  Receive Date: 20240101
  Receipt Date: 20240101
  Transmission Date: 20240410
  Serious: Yes (Other)
  Sender: FDA-Public Use
  Company Number: None

PATIENT

DRUGS (3)
  1. ATOVAQUONE\PROGUANIL HYDROCHLORIDE [Suspect]
     Active Substance: ATOVAQUONE\PROGUANIL HYDROCHLORIDE
     Indication: Foreign travel
     Dosage: 100 MILLIGRAM
     Route: 065
     Dates: start: 20231109, end: 20231111
  2. BENYLIN MUCUS COUGH PLUS DECONGESTANT [Concomitant]
     Indication: Cough
     Dosage: UNK
     Route: 065
     Dates: start: 20231114, end: 20231117
  3. ACETAMINOPHEN\CAFFEINE\GUAIFENESIN\PHENYLEPHRINE [Concomitant]
     Active Substance: ACETAMINOPHEN\CAFFEINE\GUAIFENESIN\PHENYLEPHRINE
     Indication: Cough
     Dosage: UNK
     Route: 065
     Dates: start: 20231105, end: 20231117

REACTIONS (3)
  - Eye swelling [Recovered/Resolved]
  - Oropharyngeal pain [Recovered/Resolved]
  - Rash pruritic [Recovered/Resolved]

NARRATIVE: CASE EVENT DATE: 20231110
